FAERS Safety Report 14345101 (Version 1)
Quarter: 2018Q1

REPORT INFORMATION
  Report Type: Spontaneous
  Country: CA (occurrence: CA)
  Receive Date: 20180103
  Receipt Date: 20180103
  Transmission Date: 20180509
  Serious: Yes (Hospitalization)
  Sender: FDA-Public Use
  Company Number: CA-BAUSCH-BL-2017-036396

PATIENT
  Age: 92 Year
  Sex: Female

DRUGS (4)
  1. METRONIDAZOLE. [Suspect]
     Active Substance: METRONIDAZOLE
     Indication: GASTROINTESTINAL INFECTION
     Dosage: HALF TABLET
     Route: 048
  2. VALSARTAN. [Concomitant]
     Active Substance: VALSARTAN
     Indication: PRODUCT USED FOR UNKNOWN INDICATION
  3. ROSUVASTATIN. [Concomitant]
     Active Substance: ROSUVASTATIN
     Indication: PRODUCT USED FOR UNKNOWN INDICATION
  4. CLOPIDOGREL [Concomitant]
     Active Substance: CLOPIDOGREL BISULFATE
     Indication: PRODUCT USED FOR UNKNOWN INDICATION

REACTIONS (12)
  - Asthenia [Unknown]
  - Muscle spasms [Unknown]
  - Dizziness [Unknown]
  - Flatulence [Unknown]
  - Vision blurred [Unknown]
  - Pruritus [Unknown]
  - Diarrhoea [Unknown]
  - Depression [Unknown]
  - Balance disorder [Unknown]
  - Dysgeusia [Unknown]
  - Rhinorrhoea [Unknown]
  - Dry mouth [Unknown]
